FAERS Safety Report 5690528-9 (Version None)
Quarter: 2008Q1

REPORT INFORMATION
  Report Type: 
  Country: None (occurrence: None)
  Receive Date: 20080331
  Receipt Date: 20080331
  Transmission Date: 20080703
  Serious: Yes (Other)
  Sender: FDA-Public Use
  Company Number: None

PATIENT
  Age: 19 Year
  Sex: Male
  Weight: 90.7194 kg

DRUGS (1)
  1. SINGULAIR [Suspect]
     Indication: HYPERSENSITIVITY
     Dosage: ONE PILL AT NIGHT EVERYDAY
     Dates: start: 20060601, end: 20060901

REACTIONS (6)
  - ANHEDONIA [None]
  - ANXIETY [None]
  - CRYING [None]
  - FEELING ABNORMAL [None]
  - PANIC ATTACK [None]
  - THINKING ABNORMAL [None]
